FAERS Safety Report 7456147-9 (Version None)
Quarter: 2011Q2

REPORT INFORMATION
  Report Type: 
  Country: None (occurrence: None)
  Receive Date: 20110503
  Receipt Date: 20080828
  Transmission Date: 20111010
  Serious: Yes (Hospitalization, Other)
  Sender: FDA-Public Use
  Company Number: US-BAYER-201040169NA

PATIENT
  Age: 52 Year
  Sex: Male
  Weight: 83.9 kg

DRUGS (12)
  1. ESMOLOL [Concomitant]
     Dosage: UNK
     Route: 042
     Dates: start: 20070129, end: 20070129
  2. TRASYLOL [Suspect]
     Dosage: 50 ML, Q1HR FOR AT LEAST 75 MINUTES
     Route: 042
     Dates: start: 20070129, end: 20070129
  3. SIMVASTATIN [Concomitant]
     Dosage: 10 MG NIGHTLY, UNK
     Route: 048
  4. VERSED [Concomitant]
     Dosage: 5 MG, UNK
     Route: 042
     Dates: start: 20070129, end: 20070129
  5. AMIODARONE [Concomitant]
     Dosage: UNK
     Route: 042
     Dates: start: 20070129, end: 20070202
  6. HEPARIN [Concomitant]
     Dosage: 50000 U, UNK
     Route: 042
     Dates: start: 20070129, end: 20070129
  7. ANCEF [Concomitant]
     Dosage: 2 G, UNK
     Route: 042
     Dates: start: 20070129, end: 20070129
  8. TRASYLOL [Suspect]
     Dosage: LOADING DOSE
     Route: 042
     Dates: start: 20070129, end: 20070129
  9. PROPOFOL [Concomitant]
     Dosage: UNK
     Route: 042
     Dates: start: 20070129, end: 20070202
  10. TRASYLOL [Suspect]
     Indication: AORTIC DISSECTION
     Dosage: 200 ML, VIA CARDIOPULMONARY BYPASS
     Route: 042
     Dates: start: 20070129, end: 20070129
  11. INSULIN [Concomitant]
     Dosage: UNK
     Route: 042
     Dates: start: 20070129, end: 20070203
  12. SUFENTANIL [Concomitant]
     Dosage: UNK
     Route: 042
     Dates: start: 20070129, end: 20070129

REACTIONS (15)
  - PAIN [None]
  - MULTI-ORGAN FAILURE [None]
  - EMOTIONAL DISTRESS [None]
  - ANXIETY [None]
  - CEREBROVASCULAR ACCIDENT [None]
  - RENAL INJURY [None]
  - RENAL IMPAIRMENT [None]
  - CARDIAC FAILURE CONGESTIVE [None]
  - UNEVALUABLE EVENT [None]
  - DEPRESSION [None]
  - RENAL FAILURE [None]
  - MYOCARDIAL INFARCTION [None]
  - STRESS [None]
  - FEAR [None]
  - INJURY [None]
